FAERS Safety Report 7134422-5 (Version None)
Quarter: 2010Q4

REPORT INFORMATION
  Report Type: 
  Country: None (occurrence: None)
  Receive Date: 20101203
  Receipt Date: 20101129
  Transmission Date: 20110411
  Serious: Yes (Death, Life-Threatening, Other)
  Sender: FDA-Public Use
  Company Number: PHFR2010GB02160

PATIENT
  Sex: Female

DRUGS (4)
  1. CLOZARIL [Suspect]
     Dosage: 500MG/DAY
     Route: 048
     Dates: start: 20050111
  2. CLOZARIL [Suspect]
     Dosage: UNK
     Route: 048
     Dates: start: 20091130
  3. ARIPIPRAZOLE [Concomitant]
     Indication: PSYCHOTIC DISORDER
     Dosage: 5MG/DAY
     Route: 048
  4. LAMOTRIGINE [Concomitant]
     Indication: AFFECTIVE DISORDER
     Dosage: 100MG/DAY
     Route: 048

REACTIONS (5)
  - DEPRESSED MOOD [None]
  - MULTIPLE FRACTURES [None]
  - OVERDOSE [None]
  - RESPIRATORY FAILURE [None]
  - SUICIDE ATTEMPT [None]
